FAERS Safety Report 7797993-1 (Version None)
Quarter: 2011Q4

REPORT INFORMATION
  Report Type: 
  Country: None (occurrence: None)
  Receive Date: 20111005
  Receipt Date: 20110928
  Transmission Date: 20120403
  Serious: Yes (Other)
  Sender: FDA-Public Use
  Company Number: KR-GLAXOSMITHKLINE-B0751505A

PATIENT
  Age: 77 Year
  Sex: Male

DRUGS (3)
  1. UNKNOWN MEDICATION [Concomitant]
     Indication: HYPERTENSION
     Route: 065
  2. FLUTICASONE PROPIONATE/SALMETEROL [Suspect]
     Indication: ASTHMA
     Route: 065
     Dates: start: 20040101
  3. UNKNOWN ANTI-DIABETIC MEDICATION [Concomitant]
     Indication: DIABETES MELLITUS
     Route: 065

REACTIONS (1)
  - PARKINSON'S DISEASE [None]
